FAERS Safety Report 4421598-3 (Version None)
Quarter: 2004Q3

REPORT INFORMATION
  Report Type: 
  Country: None (occurrence: None)
  Receive Date: 20040804
  Receipt Date: 20040721
  Transmission Date: 20050211
  Serious: Yes (Hospitalization)
  Sender: FDA-Public Use
  Company Number: D01200300673

PATIENT
  Age: 44 Year
  Sex: Female

DRUGS (7)
  1. OXALIPLATIN - SOLUTION - 85 MG/M2 [Suspect]
     Dosage: 85 MG/M2 Q2W
     Route: 042
     Dates: start: 20030508, end: 20030508
  2. FLUOROURACIL [Suspect]
     Dosage: 400 MG/M2 AS IV BOLUS THEN 600 MG/M2 AS 22 HOURS CONTINUOUS INFUSION D1-D2 Q2W
     Route: 042
     Dates: start: 20030508, end: 20030509
  3. SR57746 OR PLACEBO) - CAPSULE - 1 MG [Suspect]
     Indication: COLORECTAL CANCER METASTATIC
     Dosage: 1 MG QD
     Route: 048
     Dates: start: 20030331
  4. LEUCOVORIN CALCIUM [Suspect]
     Dosage: 200 MG/M2 AS 2 HOURS INFUSION ON D1-D2 Q2W
     Route: 042
     Dates: start: 20030508, end: 20030509
  5. ATIVAN [Concomitant]
  6. MORPHINE SULFATE [Concomitant]
  7. MAXERAN(METOCLOPRAMIDE) [Concomitant]

REACTIONS (7)
  - BLOOD CHLORIDE INCREASED [None]
  - FEBRILE INFECTION [None]
  - HAEMOGLOBIN DECREASED [None]
  - KLEBSIELLA INFECTION [None]
  - NAUSEA [None]
  - VAGINAL INFECTION [None]
  - WHITE BLOOD CELL COUNT DECREASED [None]
